FAERS Safety Report 13602101 (Version 2)
Quarter: 2017Q2

REPORT INFORMATION
  Report Type: Report from Study
  Country: CN (occurrence: CN)
  Receive Date: 20170601
  Receipt Date: 20170613
  Transmission Date: 20170830
  Serious: Yes (Hospitalization)
  Sender: FDA-Public Use
  Company Number: CN-EISAI MEDICAL RESEARCH-EC-2017-027961

PATIENT
  Age: 55 Year
  Sex: Male
  Weight: 72.5 kg

DRUGS (7)
  1. LENVATINIB [Suspect]
     Active Substance: LENVATINIB
     Indication: HEPATOCELLULAR CARCINOMA
     Route: 048
     Dates: start: 20161222, end: 20170401
  2. LENVATINIB [Suspect]
     Active Substance: LENVATINIB
     Route: 048
     Dates: start: 20170407
  3. POLYENE PHOSPHATIDYLCHOLINE [Concomitant]
     Active Substance: PHOSPHOLIPID
  4. COMPOUND GLYCYRRHIZIN TABLETS [Concomitant]
     Active Substance: GLYCYRRHIZIN
  5. NIFEDIPINE SUSTAINED - RELEASE TABLETS [Concomitant]
  6. LENVATINIB [Suspect]
     Active Substance: LENVATINIB
     Route: 048
     Dates: start: 20170403, end: 20170405
  7. URSODESOXYCHOLIC ACID [Concomitant]
     Active Substance: URSODIOL

REACTIONS (1)
  - Blood bilirubin increased [Recovered/Resolved]

NARRATIVE: CASE EVENT DATE: 20170427
